FAERS Safety Report 17099000 (Version 1)
Quarter: 2019Q4

REPORT INFORMATION
  Report Type: Report from Study
  Country: GB (occurrence: GB)
  Receive Date: 20191202
  Receipt Date: 20191202
  Transmission Date: 20200122
  Serious: Yes (Hospitalization)
  Sender: FDA-Public Use
  Company Number: NVSC2019GB004284

PATIENT
  Sex: Male

DRUGS (1)
  1. OMNITROPE [Suspect]
     Active Substance: SOMATROPIN
     Indication: GROWTH HORMONE DEFICIENCY
     Dosage: 0.2 MG, QD (PRE-FILLED PEN)
     Route: 058
     Dates: start: 2017

REACTIONS (6)
  - Urinary tract infection [Unknown]
  - Pneumonia [Unknown]
  - Circulatory collapse [Unknown]
  - Hypertension [Unknown]
  - Neurological infection [Unknown]
  - Vascular parkinsonism [Unknown]
